FAERS Safety Report 4886169-3 (Version None)
Quarter: 2006Q1

REPORT INFORMATION
  Report Type: 
  Country: None (occurrence: None)
  Receive Date: 20060120
  Receipt Date: 20060103
  Transmission Date: 20060701
  Serious: Yes (Hospitalization)
  Sender: FDA-Public Use
  Company Number: FRPFM-E-20050124

PATIENT
  Age: 76 Year
  Sex: Male

DRUGS (5)
  1. CIBLOR [Suspect]
     Dosage: 1G TWICE PER DAY
     Route: 048
     Dates: start: 20051111, end: 20051116
  2. COUMADIN [Suspect]
     Indication: DRUG USE FOR UNKNOWN INDICATION
     Dosage: 2MG PER DAY
     Route: 048
     Dates: start: 20030215, end: 20051117
  3. KETEK [Concomitant]
     Dosage: 400MG TWICE PER DAY
     Dates: start: 20051117, end: 20051121
  4. CALCIPARINE [Concomitant]
     Dosage: .2ML TWICE PER DAY
     Route: 065
     Dates: start: 20051101
  5. TAVANIC [Concomitant]

REACTIONS (3)
  - DRUG INTERACTION [None]
  - DRUG RESISTANCE [None]
  - INTERNATIONAL NORMALISED RATIO INCREASED [None]
